FAERS Safety Report 24191022 (Version 4)
Quarter: 2025Q3

REPORT INFORMATION
  Report Type: Spontaneous
  Country: EU (occurrence: EU)
  Receive Date: 20240808
  Receipt Date: 20250929
  Transmission Date: 20251020
  Serious: Yes (Hospitalization, Other)
  Sender: MYLAN
  Company Number: EU-CELLTRION INC.-2024IT016289

PATIENT
  Age: 69 Year
  Sex: Male

DRUGS (28)
  1. PREDNISONE [Suspect]
     Active Substance: PREDNISONE
     Indication: Glomerulonephritis membranous
     Dosage: 0.5 MILLIGRAM/KILOGRAM, QD (SINGLE DOSE (B CELL TARGETED THERAPY))
     Dates: start: 201904
  2. PREDNISONE [Suspect]
     Active Substance: PREDNISONE
     Indication: Pemphigoid
     Dosage: 0.5 MILLIGRAM/KILOGRAM, QD (SINGLE DOSE (B CELL TARGETED THERAPY))
     Route: 048
     Dates: start: 201904
  3. PREDNISONE [Suspect]
     Active Substance: PREDNISONE
     Indication: Acute kidney injury
     Dosage: 0.5 MILLIGRAM/KILOGRAM, QD (SINGLE DOSE (B CELL TARGETED THERAPY))
     Route: 048
     Dates: start: 201904
  4. PREDNISONE [Suspect]
     Active Substance: PREDNISONE
     Dosage: 0.5 MILLIGRAM/KILOGRAM, QD (SINGLE DOSE (B CELL TARGETED THERAPY))
     Dates: start: 201904
  5. METHYLPREDNISOLONE [Suspect]
     Active Substance: METHYLPREDNISOLONE
     Indication: Pemphigoid
     Dosage: 1 GRAM, QD  FOR 3 DAYS
     Dates: start: 201904
  6. METHYLPREDNISOLONE [Suspect]
     Active Substance: METHYLPREDNISOLONE
     Indication: Glomerulonephritis membranous
     Dosage: 1 GRAM, QD  FOR 3 DAYS
     Route: 042
     Dates: start: 201904
  7. METHYLPREDNISOLONE [Suspect]
     Active Substance: METHYLPREDNISOLONE
     Indication: Acute kidney injury
     Dosage: 1 GRAM, QD  FOR 3 DAYS
     Route: 042
     Dates: start: 201904
  8. METHYLPREDNISOLONE [Suspect]
     Active Substance: METHYLPREDNISOLONE
     Dosage: 1 GRAM, QD  FOR 3 DAYS
     Dates: start: 201904
  9. MABTHERA [Suspect]
     Active Substance: RITUXIMAB
     Indication: Pemphigoid
  10. MABTHERA [Suspect]
     Active Substance: RITUXIMAB
     Indication: Glomerulonephritis membranous
  11. MABTHERA [Suspect]
     Active Substance: RITUXIMAB
     Route: 065
  12. MABTHERA [Suspect]
     Active Substance: RITUXIMAB
     Route: 065
  13. MABTHERA [Suspect]
     Active Substance: RITUXIMAB
  14. MABTHERA [Suspect]
     Active Substance: RITUXIMAB
  15. MABTHERA [Suspect]
     Active Substance: RITUXIMAB
     Route: 065
  16. MABTHERA [Suspect]
     Active Substance: RITUXIMAB
     Route: 065
  17. RITUXIMAB [Concomitant]
     Active Substance: RITUXIMAB
     Indication: Pemphigoid
  18. RITUXIMAB [Concomitant]
     Active Substance: RITUXIMAB
     Indication: Glomerulonephritis membranous
  19. RITUXIMAB [Concomitant]
     Active Substance: RITUXIMAB
     Route: 065
  20. RITUXIMAB [Concomitant]
     Active Substance: RITUXIMAB
     Route: 065
  21. RITUXIMAB [Concomitant]
     Active Substance: RITUXIMAB
  22. RITUXIMAB [Concomitant]
     Active Substance: RITUXIMAB
  23. RITUXIMAB [Concomitant]
     Active Substance: RITUXIMAB
     Route: 065
  24. RITUXIMAB [Concomitant]
     Active Substance: RITUXIMAB
     Route: 065
  25. LINAGLIPTIN [Concomitant]
     Active Substance: LINAGLIPTIN
     Indication: Diabetes mellitus
  26. LINAGLIPTIN [Concomitant]
     Active Substance: LINAGLIPTIN
     Route: 065
  27. LINAGLIPTIN [Concomitant]
     Active Substance: LINAGLIPTIN
     Route: 065
  28. LINAGLIPTIN [Concomitant]
     Active Substance: LINAGLIPTIN

REACTIONS (6)
  - Hyperglycaemia [Recovered/Resolved]
  - Oedema [Recovered/Resolved]
  - Cellulitis staphylococcal [Unknown]
  - Therapeutic response unexpected [Unknown]
  - Therapeutic product effective for unapproved indication [Unknown]
  - Intentional product use issue [Unknown]

NARRATIVE: CASE EVENT DATE: 20190101
